FAERS Safety Report 8108557-4 (Version None)
Quarter: 2012Q1

REPORT INFORMATION
  Report Type: 
  Country: None (occurrence: None)
  Receive Date: 20120202
  Receipt Date: 20120127
  Transmission Date: 20120608
  Serious: Yes (Other)
  Sender: FDA-Public Use
  Company Number: PHHY2012CA004179

PATIENT
  Sex: Female

DRUGS (7)
  1. ZOLEDRONOC ACID [Suspect]
     Dosage: UNK UKN, UNK
     Route: 042
     Dates: start: 20110221
  2. DIOVAN HCT [Concomitant]
     Dosage: 1 DF (80/12.5 MG), QD
  3. PLAVIX [Concomitant]
     Dosage: 75 MG, QD
  4. ZOLEDRONOC ACID [Suspect]
     Indication: OSTEOPOROSIS
     Dosage: UNK UKN, UNK
     Route: 042
     Dates: start: 20100219
  5. AMLODIPINE [Concomitant]
     Dosage: 2.5 MG, QD
  6. CRESTOR [Concomitant]
     Dosage: 10 MG, QD
  7. COTAZYM [Concomitant]

REACTIONS (4)
  - GOUT [None]
  - CREATININE RENAL CLEARANCE DECREASED [None]
  - BLOOD URIC ACID INCREASED [None]
  - BLOOD CREATININE INCREASED [None]
